FAERS Safety Report 5897060-8 (Version None)
Quarter: 2008Q3

REPORT INFORMATION
  Report Type: 
  Country: None (occurrence: None)
  Receive Date: 20080923
  Receipt Date: 20080910
  Transmission Date: 20090109
  Serious: Yes (Disabling)
  Sender: FDA-Public Use
  Company Number: POMP-1000283

PATIENT
  Age: 66 Year
  Sex: Male
  Weight: 85.8 kg

DRUGS (9)
  1. MYOZYME [Suspect]
     Indication: GLYCOGEN STORAGE DISEASE TYPE II
     Dosage: 20 MG/KG, Q2W, INTRAVENOUS
     Route: 042
     Dates: start: 20080602
  2. COZAAR [Concomitant]
  3. NORVASC [Concomitant]
  4. INDAPAMIDE [Concomitant]
  5. ZOLOFT [Concomitant]
  6. THYROID SUPPLEMENT [Concomitant]
  7. FISH OIL SUPPLEMENT [Concomitant]
  8. MULTIVITAMIN [Concomitant]
  9. POTASSIUM (POTASSIUM) [Concomitant]

REACTIONS (9)
  - BLOOD POTASSIUM DECREASED [None]
  - DYSPHAGIA [None]
  - ELECTROLYTE IMBALANCE [None]
  - HYPOTHYROIDISM [None]
  - INFUSION RELATED REACTION [None]
  - MASTICATION DISORDER [None]
  - MOVEMENT DISORDER [None]
  - PHARMACEUTICAL PRODUCT COMPLAINT [None]
  - SOMNOLENCE [None]
